FAERS Safety Report 10528161 (Version 1)
Quarter: 2014Q4

REPORT INFORMATION
  Report Type: Spontaneous
  Country: US (occurrence: US)
  Receive Date: 20141020
  Receipt Date: 20141020
  Transmission Date: 20150528
  Serious: Yes (Death, Other)
  Sender: FDA-Public Use
  Company Number: US-GLAXOSMITHKLINE-US2014GSK007312

PATIENT
  Age: 27 Year
  Sex: Male

DRUGS (2)
  1. TORADOL (KETOROLAC) [Concomitant]
  2. ARIXTRA [Suspect]
     Active Substance: FONDAPARINUX SODIUM
     Dosage: 2.5 MG, U
     Route: 058
     Dates: start: 20111117

REACTIONS (5)
  - Sepsis [Unknown]
  - Haematemesis [Unknown]
  - Medication error [Unknown]
  - Haemorrhage [Fatal]
  - Arrhythmia [Fatal]

NARRATIVE: CASE EVENT DATE: 20111118
